FAERS Safety Report 19915444 (Version 1)
Quarter: 2021Q4

REPORT INFORMATION
  Report Type: Spontaneous
  Country: US (occurrence: US)
  Receive Date: 20211004
  Receipt Date: 20211004
  Transmission Date: 20220303
  Serious: No
  Sender: FDA-Public Use
  Company Number: US-OTSUKA-2021_002996

PATIENT
  Sex: Male

DRUGS (1)
  1. ABILIFY MAINTENA [Suspect]
     Active Substance: ARIPIPRAZOLE
     Indication: Product used for unknown indication
     Dosage: 441 MG, UNK
     Route: 065

REACTIONS (8)
  - Feeling abnormal [Unknown]
  - Mental impairment [Unknown]
  - Fall [Unknown]
  - Injection site pain [Not Recovered/Not Resolved]
  - Restlessness [Unknown]
  - Incorrect dose administered [Unknown]
  - Product dose omission issue [Unknown]
  - Inappropriate schedule of product administration [Unknown]
